FAERS Safety Report 16772960 (Version 2)
Quarter: 2020Q1

REPORT INFORMATION
  Report Type: Spontaneous
  Country: SE (occurrence: SE)
  Receive Date: 20190904
  Receipt Date: 20200312
  Transmission Date: 20200409
  Serious: Yes (Other)
  Sender: FDA-Public Use
  Company Number: SE-MYLANLABS-2019M1076325

PATIENT
  Age: 64 Year

DRUGS (1)
  1. EPIPEN [Suspect]
     Active Substance: EPINEPHRINE
     Indication: ALLERGY TO ARTHROPOD STING
     Dosage: 300 MICROGRAM
     Route: 030
     Dates: start: 201908, end: 201908

REACTIONS (1)
  - Device failure [Unknown]

NARRATIVE: CASE EVENT DATE: 201908
